FAERS Safety Report 10576812 (Version 1)
Quarter: 2014Q4

REPORT INFORMATION
  Report Type: Spontaneous
  Country: PT (occurrence: PT)
  Receive Date: 20141111
  Receipt Date: 20141111
  Transmission Date: 20150529
  Serious: Yes (Death)
  Sender: FDA-Public Use
  Company Number: PT-JNJFOC-20141103589

PATIENT
  Age: 83 Year
  Sex: Female

DRUGS (2)
  1. TRAMAL [Suspect]
     Active Substance: TRAMADOL
     Indication: ANALGESIC THERAPY
     Dosage: FOR A TOAL DURATION OF 42 HOURS
     Route: 042
     Dates: start: 20091230, end: 20091231
  2. TRAMAL [Suspect]
     Active Substance: TRAMADOL
     Indication: ANALGESIC THERAPY
     Route: 042
     Dates: start: 20091230

REACTIONS (1)
  - Death [Fatal]
